FAERS Safety Report 14524516 (Version 1)
Quarter: 2018Q1

REPORT INFORMATION
  Report Type: Report from Study
  Country: KR (occurrence: US)
  Receive Date: 20180213
  Receipt Date: 20180213
  Transmission Date: 20180509
  Serious: Yes (Other)
  Sender: FDA-Public Use
  Company Number: KR-ROCHE-2067973

PATIENT

DRUGS (5)
  1. PEG-INTERFERON ALFA 2A [Suspect]
     Active Substance: PEGINTERFERON ALFA-2A
     Indication: CHRONIC HEPATITIS C
     Route: 065
  2. SIMEPREVIR [Suspect]
     Active Substance: SIMEPREVIR
     Indication: CHRONIC HEPATITIS C
     Route: 065
  3. LEDIPASVIR [Suspect]
     Active Substance: LEDIPASVIR
     Indication: CHRONIC HEPATITIS C
     Route: 065
  4. RIBAVIRIN. [Suspect]
     Active Substance: RIBAVIRIN
     Indication: CHRONIC HEPATITIS C
     Route: 065
  5. SOFOSBUVIR [Suspect]
     Active Substance: SOFOSBUVIR
     Indication: CHRONIC HEPATITIS C
     Route: 065

REACTIONS (11)
  - Nausea [Unknown]
  - Renal impairment [Recovered/Resolved]
  - Headache [Unknown]
  - Rash [Unknown]
  - Ocular discomfort [Unknown]
  - Abdominal discomfort [Unknown]
  - Anaemia [Unknown]
  - Fatigue [Unknown]
  - Dizziness [Unknown]
  - Anxiety [Unknown]
  - Diarrhoea [Unknown]
